FAERS Safety Report 4325353-4 (Version None)
Quarter: 2004Q1

REPORT INFORMATION
  Report Type: 
  Country: None (occurrence: None)
  Receive Date: 20040324
  Receipt Date: 20040309
  Transmission Date: 20041129
  Serious: Yes (Death, Hospitalization)
  Sender: FDA-Public Use
  Company Number: F01200301444

PATIENT
  Age: 76 Year
  Sex: Male

DRUGS (11)
  1. OXALIPLATIN - SOLUTION - 85 MG/M2 [Suspect]
     Indication: COLORECTAL CANCER
     Dosage: 85 MG/M2 AS A 2-HOURS IV INFUSION ON DAYS 1 AND 15, Q4W
     Route: 042
     Dates: start: 20031203, end: 20031203
  2. FLUOROURACIL [Suspect]
     Dosage: 500 MG/M2 BOLUS ON D1, D8 AND D15, Q4W A FEW MINS.
     Route: 040
     Dates: start: 20031203, end: 20031203
  3. LEUCOVORIN - SOLUTION - 20 MG/M2 [Suspect]
     Dosage: 20 MG/M2 ON D1, D8 AND D15, Q4W A A FEW MINS
     Route: 040
     Dates: start: 20031203, end: 20031203
  4. AVASTIN [Suspect]
     Dosage: 5 MG/KG OVER 30-90 MINUTES IV INFUSION ON DAY 1 AND DAY 15 Q4W
     Route: 042
     Dates: start: 20031203, end: 20031203
  5. METOPROLOL [Concomitant]
  6. ACIPHEX [Concomitant]
  7. COLACE (DOCUSATE SODIUM) [Concomitant]
  8. FERROUS SULFATE TAB [Concomitant]
  9. SIMVASTATIN [Concomitant]
  10. RABEPRAZOLE SODIUM [Concomitant]
  11. METOCLOPRAMIDE [Concomitant]

REACTIONS (34)
  - ABDOMINAL PAIN [None]
  - ANOREXIA [None]
  - AORTIC VALVE SCLEROSIS [None]
  - ATELECTASIS [None]
  - ATRIAL FIBRILLATION [None]
  - CARDIAC OUTPUT DECREASED [None]
  - CARDIO-RESPIRATORY ARREST [None]
  - CARDIOGENIC SHOCK [None]
  - DIALYSIS [None]
  - DIARRHOEA [None]
  - DILATATION ATRIAL [None]
  - ELECTROCARDIOGRAM QRS COMPLEX ABNORMAL [None]
  - ELECTROCARDIOGRAM ST SEGMENT ABNORMAL [None]
  - ELECTROCARDIOGRAM T WAVE ABNORMAL [None]
  - HYPOTENSION [None]
  - INTESTINAL ISCHAEMIA [None]
  - INTRACARDIAC THROMBUS [None]
  - LEUKOPENIA [None]
  - LUNG CONSOLIDATION [None]
  - NAUSEA [None]
  - PLEURAL EFFUSION [None]
  - PNEUMONIA [None]
  - PULMONARY OEDEMA [None]
  - PULMONARY VASCULAR DISORDER [None]
  - RENAL FAILURE ACUTE [None]
  - RENAL TUBULAR NECROSIS [None]
  - RESPIRATORY MONILIASIS [None]
  - SEPTIC SHOCK [None]
  - SPUTUM CULTURE POSITIVE [None]
  - STENOTROPHOMONAS INFECTION [None]
  - SUPRAVENTRICULAR EXTRASYSTOLES [None]
  - SUPRAVENTRICULAR TACHYCARDIA [None]
  - VENTRICULAR HYPOKINESIA [None]
  - VOMITING [None]
